FAERS Safety Report 4954567-5 (Version None)
Quarter: 2006Q1

REPORT INFORMATION
  Report Type: 
  Country: None (occurrence: None)
  Receive Date: 20060327
  Receipt Date: 20060210
  Transmission Date: 20060701
  Serious: Yes (Life-Threatening, Hospitalization)
  Sender: FDA-Public Use
  Company Number: MX-JNJFOC-20060203416

PATIENT
  Age: 37 Year
  Sex: Male
  Weight: 43 kg

DRUGS (4)
  1. RISPERDAL [Suspect]
     Indication: DELIRIUM
  2. IMIPENEM [Concomitant]
     Indication: SEPSIS
  3. METOCLOPRAMIDE [Concomitant]
     Indication: ANTIEMETIC SUPPORTIVE CARE
  4. PROPRANOLOL HYDROCHLORIDE [Concomitant]
     Indication: HYPERTENSION

REACTIONS (2)
  - CEREBRAL HAEMORRHAGE [None]
  - SOMNOLENCE [None]
